FAERS Safety Report 7446198-2 (Version None)
Quarter: 2011Q2

REPORT INFORMATION
  Report Type: 
  Country: None (occurrence: None)
  Receive Date: 20110429
  Receipt Date: 20110419
  Transmission Date: 20111010
  Serious: Yes (Hospitalization)
  Sender: FDA-Public Use
  Company Number: FR-B.I. PHARMACEUTICALS,INC./RIDGEFIELD-2011-FF-00413FF

PATIENT
  Sex: Female
  Weight: 38 kg

DRUGS (2)
  1. PRADAXA [Suspect]
     Indication: THROMBOSIS PROPHYLAXIS
     Dosage: 220 MG
     Route: 048
     Dates: end: 20110416
  2. PRADAXA [Suspect]
     Indication: HIP ARTHROPLASTY

REACTIONS (4)
  - DEHYDRATION [None]
  - HYPOKALAEMIA [None]
  - DIARRHOEA [None]
  - CROHN'S DISEASE [None]
